FAERS Safety Report 20713734 (Version 1)
Quarter: 2022Q2

REPORT INFORMATION
  Report Type: Report from Study
  Country: CN (occurrence: CN)
  Receive Date: 20220415
  Receipt Date: 20220415
  Transmission Date: 20220721
  Serious: Yes (Death)
  Sender: FDA-Public Use
  Company Number: CN-ELI_LILLY_AND_COMPANY-CN202204006638

PATIENT
  Age: 73 Year
  Sex: Male

DRUGS (3)
  1. PEMETREXED [Suspect]
     Active Substance: PEMETREXED
     Indication: Non-small cell lung cancer stage IIIA
     Dosage: 500 MG/M2, CYCLICAL
     Route: 042
  2. SINTILIMAB [Concomitant]
     Active Substance: SINTILIMAB
     Indication: Non-small cell lung cancer stage IIIA
     Dosage: 200 MG, CYCLICAL
     Route: 042
  3. CARBOPLATIN [Concomitant]
     Active Substance: CARBOPLATIN
     Indication: Non-small cell lung cancer stage IIIA
     Dosage: UNK, UNKNOWN
     Route: 042

REACTIONS (2)
  - Hepatic failure [Fatal]
  - Hypovolaemic shock [Fatal]
